FAERS Safety Report 7646508-7 (Version None)
Quarter: 2011Q3

REPORT INFORMATION
  Report Type: 
  Country: None (occurrence: None)
  Receive Date: 20110801
  Receipt Date: 20110720
  Transmission Date: 20111222
  Serious: Yes (Hospitalization)
  Sender: FDA-Public Use
  Company Number: CA-JNJFOC-20110709339

PATIENT
  Sex: Female
  Weight: 68 kg

DRUGS (3)
  1. METHOTREXATE [Concomitant]
  2. REMICADE [Suspect]
     Route: 042
     Dates: start: 20100801
  3. REMICADE [Suspect]
     Indication: CROHN'S DISEASE
     Route: 042
     Dates: start: 20100501

REACTIONS (3)
  - ABDOMINAL PAIN [None]
  - DIARRHOEA HAEMORRHAGIC [None]
  - SMALL INTESTINAL STENOSIS [None]
